FAERS Safety Report 5564255-2 (Version None)
Quarter: 2007Q4

REPORT INFORMATION
  Report Type: 
  Country: None (occurrence: None)
  Receive Date: 20071212
  Receipt Date: 20071127
  Transmission Date: 20080405
  Serious: Yes (Disabling)
  Sender: FDA-Public Use
  Company Number: 164723ISR

PATIENT
  Age: 5 Year
  Sex: Female

DRUGS (1)
  1. VALPROIC ACID [Suspect]
     Indication: EPILEPSY
     Dosage: 640 MG , ORAL
     Route: 048

REACTIONS (1)
  - GINGIVAL HYPERTROPHY [None]
